FAERS Safety Report 11127194 (Version 1)
Quarter: 2015Q2

REPORT INFORMATION
  Report Type: Spontaneous
  Country: US (occurrence: None)
  Receive Date: 20150520
  Receipt Date: 20150520
  Transmission Date: 20150821
  Serious: No
  Sender: FDA-Public Use
  Company Number: None

PATIENT
  Age: 58 Year
  Sex: Female
  Weight: 72.58 kg

DRUGS (5)
  1. FLECAIMDE [Concomitant]
  2. THYROID SUPPORT [Concomitant]
     Active Substance: CALCIUM IODIDE\CAUSTICUM\FERROUS IODIDE\FUCUS VESICULOSUS\OYSTER SHELL CALCIUM CARBONATE, CRUDE\POTASSIUM IODIDE\SODIUM CHLORIDE\THYROID
  3. CARBOCAINE [Suspect]
     Active Substance: MEPIVACAINE HYDROCHLORIDE
     Indication: LOCAL ANAESTHESIA
     Dosage: LOCAL ANESTHETIC DENTAL INJECTION ?
     Dates: end: 20140630
  4. CARBOCAINE [Suspect]
     Active Substance: MEPIVACAINE HYDROCHLORIDE
     Indication: DENTAL OPERATION
     Dosage: LOCAL ANESTHETIC DENTAL INJECTION ?
     Dates: end: 20140630
  5. XANAX [Concomitant]
     Active Substance: ALPRAZOLAM

REACTIONS (1)
  - Sensation of blood flow [None]

NARRATIVE: CASE EVENT DATE: 19990120
